FAERS Safety Report 4997764-5 (Version None)
Quarter: 2006Q2

REPORT INFORMATION
  Report Type: 
  Country: None (occurrence: None)
  Receive Date: 20060510
  Receipt Date: 20060407
  Transmission Date: 20061013
  Serious: Yes (Other)
  Sender: FDA-Public Use
  Company Number: PHFR2006GB01408

PATIENT
  Age: 18 Year
  Sex: Male
  Weight: 110.9 kg

DRUGS (2)
  1. RITALIN [Suspect]
     Indication: PSYCHOMOTOR HYPERACTIVITY
     Dosage: 20 MG, BID
     Route: 048
     Dates: start: 20000101
  2. ALCOHOL [Suspect]
     Route: 065

REACTIONS (6)
  - ABDOMINAL PAIN UPPER [None]
  - DEFAECATION URGENCY [None]
  - FEELING COLD [None]
  - LOSS OF CONSCIOUSNESS [None]
  - MALAISE [None]
  - TREMOR [None]
